FAERS Safety Report 22632672 (Version 1)
Quarter: 2023Q2

REPORT INFORMATION
  Report Type: Spontaneous
  Country: JP (occurrence: JP)
  Receive Date: 20230623
  Receipt Date: 20230623
  Transmission Date: 20230722
  Serious: Yes (Other)
  Sender: FDA-Public Use
  Company Number: JP-ALCON LABORATORIES-ALC2022JP004739

PATIENT

DRUGS (1)
  1. BSS PLUS [Suspect]
     Active Substance: CALCIUM CHLORIDE\DEXTROSE\MAGNESIUM CHLORIDE\OXIGLUTATIONE\POTASSIUM CHLORIDE\SODIUM BICARBONATE\SOD
     Indication: Cataract operation
     Dosage: UNK
     Route: 065

REACTIONS (1)
  - Endophthalmitis [Recovered/Resolved]

NARRATIVE: CASE EVENT DATE: 20220801
